FAERS Safety Report 5480374-3 (Version None)
Quarter: 2007Q4

REPORT INFORMATION
  Report Type: 
  Country: None (occurrence: None)
  Receive Date: 20071004
  Receipt Date: 20071004
  Transmission Date: 20080405
  Serious: Yes (Hospitalization)
  Sender: FDA-Public Use
  Company Number: None

PATIENT
  Sex: Male
  Weight: 93.5 kg

DRUGS (1)
  1. CYTARABINE [Suspect]
     Dosage: 38.34 G
     Dates: end: 20070910

REACTIONS (3)
  - DISEASE RECURRENCE [None]
  - NEUTROPENIA [None]
  - RECTAL ABSCESS [None]
